FAERS Safety Report 15672722 (Version 3)
Quarter: 2019Q2

REPORT INFORMATION
  Report Type: Report from Study
  Country: US (occurrence: US)
  Receive Date: 20181129
  Receipt Date: 20190515
  Transmission Date: 20190711
  Serious: Yes (Life-Threatening, Hospitalization, Other)
  Sender: FDA-Public Use
  Company Number: US-TESARO-US-2018TSO01003

PATIENT
  Age: 67 Year
  Sex: Female
  Weight: 43 kg

DRUGS (2)
  1. ZEJULA [Suspect]
     Active Substance: NIRAPARIB
     Indication: OVARIAN CANCER
     Dosage: 300 MG, QHS
     Route: 048
     Dates: start: 20171017, end: 20190216
  2. ZEJULA [Suspect]
     Active Substance: NIRAPARIB
     Dosage: 300MG PM WITHOUT FOOD
     Route: 048
     Dates: start: 20190224, end: 20190306

REACTIONS (23)
  - Weight gain poor [Not Recovered/Not Resolved]
  - Blood bilirubin increased [Unknown]
  - Mucosal inflammation [Recovering/Resolving]
  - Blood urea increased [Unknown]
  - Malnutrition [Unknown]
  - Pancytopenia [Unknown]
  - Taste disorder [Not Recovered/Not Resolved]
  - Fatigue [Unknown]
  - Nausea [Recovering/Resolving]
  - Stomatitis [Recovering/Resolving]
  - Bone marrow disorder [Unknown]
  - Carbohydrate antigen 125 increased [Recovering/Resolving]
  - Dry mouth [Not Recovered/Not Resolved]
  - Thrombocytopenia [Recovering/Resolving]
  - Gastrointestinal stoma complication [Unknown]
  - Hernia repair [Unknown]
  - Blood calcium decreased [Unknown]
  - Oral pain [Recovering/Resolving]
  - Photosensitivity reaction [Not Recovered/Not Resolved]
  - Weight decreased [Not Recovered/Not Resolved]
  - Metastases to lymph nodes [Unknown]
  - Oropharyngeal pain [Unknown]
  - Hypokalaemia [Unknown]

NARRATIVE: CASE EVENT DATE: 20190211
